FAERS Safety Report 16161680 (Version 7)
Quarter: 2021Q3

REPORT INFORMATION
  Report Type: Spontaneous
  Country: US (occurrence: US)
  Receive Date: 20190405
  Receipt Date: 20210809
  Transmission Date: 20211014
  Serious: Yes (Other)
  Sender: FDA-Public Use
  Company Number: US-PFIZER INC-2019142637

PATIENT
  Age: 79 Year
  Sex: Female
  Weight: 65 kg

DRUGS (8)
  1. MELOXICAM. [Concomitant]
     Active Substance: MELOXICAM
     Dosage: UNK
  2. METHOTREXATE. [Concomitant]
     Active Substance: METHOTREXATE
     Dosage: UNK
  3. PROPRANOLOL [Concomitant]
     Active Substance: PROPRANOLOL HYDROCHLORIDE
     Indication: BLOOD PRESSURE MEASUREMENT
     Dosage: 20 MG, 1X/DAY
  4. PREDNISONE. [Concomitant]
     Active Substance: PREDNISONE
     Dosage: 5 MG, UNK
  5. XELJANZ XR [Suspect]
     Active Substance: TOFACITINIB CITRATE
     Indication: RHEUMATOID ARTHRITIS
     Dosage: 11 MG, DAILY
     Route: 048
     Dates: start: 2019
  6. PREDNISONE. [Concomitant]
     Active Substance: PREDNISONE
     Dosage: 1 MG, UNK
  7. LOSARTAN/HCTZ [Concomitant]
     Active Substance: HYDROCHLOROTHIAZIDE\LOSARTAN
     Indication: BLOOD PRESSURE ABNORMAL
     Dosage: UNK , 1X/DAY [LOSARTAN: 100MG, HCTZ: 12.5MG]
  8. COVID?19 VACCINE [Concomitant]
     Dosage: UNK
     Dates: start: 202104

REACTIONS (16)
  - Hypertension [Unknown]
  - Weight increased [Unknown]
  - Hypovitaminosis [Unknown]
  - Pain in extremity [Unknown]
  - Plicated tongue [Unknown]
  - Illness [Unknown]
  - Oral viral infection [Unknown]
  - Tongue disorder [Unknown]
  - Viral infection [Unknown]
  - Liver function test increased [Unknown]
  - Burn oral cavity [Unknown]
  - Streptococcal infection [Unknown]
  - Cystitis [Unknown]
  - Therapeutic product effect incomplete [Unknown]
  - Condition aggravated [Unknown]
  - Sinusitis [Unknown]

NARRATIVE: CASE EVENT DATE: 2019
